FAERS Safety Report 5897739-8 (Version None)
Quarter: 2008Q3

REPORT INFORMATION
  Report Type: 
  Country: None (occurrence: None)
  Receive Date: 20080924
  Receipt Date: 20080924
  Transmission Date: 20090109
  Serious: No
  Sender: FDA-Public Use
  Company Number: None

PATIENT
  Age: 55 Year
  Sex: Female
  Weight: 68.0396 kg

DRUGS (1)
  1. ARIMIDEX [Suspect]
     Indication: BREAST CANCER
     Dosage: 1 PILL DAILY
     Dates: start: 20060601, end: 20060728

REACTIONS (3)
  - ARTHRALGIA [None]
  - JOINT LOCK [None]
  - JOINT SWELLING [None]
